FAERS Safety Report 16136968 (Version 1)
Quarter: 2019Q2

REPORT INFORMATION
  Report Type: Other
  Country: GB (occurrence: GB)
  Receive Date: 20190401
  Receipt Date: 20190401
  Transmission Date: 20190711
  Serious: No
  Sender: FDA-Public Use
  Company Number: GB-LUPIN PHARMACEUTICALS INC.-2018-02656

PATIENT
  Age: 68 Year
  Sex: Male
  Weight: 109 kg

DRUGS (11)
  1. LANSOPRAZOLE. [Concomitant]
     Active Substance: LANSOPRAZOLE
     Indication: ILL-DEFINED DISORDER
     Dosage: TAKE ONE TABLET TWICE DAILY, BID
     Route: 065
     Dates: start: 20170901
  2. ATORVASTATIN [Concomitant]
     Active Substance: ATORVASTATIN
     Indication: ILL-DEFINED DISORDER
     Dosage: 1 DF, QD (TAKE ONE DAILY )
     Route: 065
     Dates: start: 20170324
  3. RAMIPRIL. [Concomitant]
     Active Substance: RAMIPRIL
     Indication: ILL-DEFINED DISORDER
     Dosage: TAKE ONE DAILY, QD
     Route: 065
     Dates: start: 20170324
  4. LIRAGLUTIDE [Concomitant]
     Active Substance: LIRAGLUTIDE
     Indication: ILL-DEFINED DISORDER
     Dosage: 1.2 MG, QD
     Route: 065
     Dates: start: 20170324
  5. NOVOMIX [Concomitant]
     Active Substance: INSULIN ASPART
     Indication: ILL-DEFINED DISORDER
     Dosage: USE AS DIRECTED
     Route: 065
     Dates: start: 20170324
  6. BECLOMETASONE [Concomitant]
     Active Substance: BECLOMETHASONE DIPROPIONATE
     Indication: ILL-DEFINED DISORDER
     Dosage: UNK, 2 SPRAYS INTO EACH NOSTRIL TWICE DAILY
     Route: 065
     Dates: start: 20171116
  7. AMLODIPINE [Concomitant]
     Active Substance: AMLODIPINE BESYLATE
     Indication: ILL-DEFINED DISORDER
     Dosage: 1 DF, QD (TAKE ONE DAILY )
     Route: 065
     Dates: start: 20170324
  8. METFORMIN [Concomitant]
     Active Substance: METFORMIN HYDROCHLORIDE
     Indication: ILL-DEFINED DISORDER
     Dosage: 2 DF, BID (TAKE TWO, TWICE A DAY )
     Route: 065
     Dates: start: 20170324
  9. ACETYLSALICYLIC ACID [Concomitant]
     Active Substance: ASPIRIN
     Indication: ILL-DEFINED DISORDER
     Dosage: TAKE ONE DAILY
     Route: 065
     Dates: start: 20170324
  10. SERTRALINE [Suspect]
     Active Substance: SERTRALINE HYDROCHLORIDE
     Indication: PRODUCT USED FOR UNKNOWN INDICATION
     Dosage: UNK
     Route: 065
     Dates: start: 20170510
  11. GAVISCON ADVANCED [Concomitant]
     Indication: ILL-DEFINED DISORDER
     Dosage: 5ML - 10ML 4 TIMES/DAY
     Route: 065
     Dates: start: 20170324

REACTIONS (1)
  - Nightmare [Recovering/Resolving]

NARRATIVE: CASE EVENT DATE: 20180312
